FAERS Safety Report 7925276-5 (Version None)
Quarter: 2011Q4

REPORT INFORMATION
  Report Type: 
  Country: None (occurrence: None)
  Receive Date: 20111118
  Receipt Date: 20110405
  Transmission Date: 20120403
  Serious: No
  Sender: FDA-Public Use
  Company Number: US-AMGEN-USASP2011015587

PATIENT
  Age: 52 Year
  Sex: Male

DRUGS (2)
  1. ENBREL [Suspect]
     Indication: PSORIATIC ARTHROPATHY
     Dosage: 50 MG, 2 TIMES/WK
     Dates: start: 20040927, end: 20110228
  2. ENBREL [Suspect]
     Indication: PSORIASIS

REACTIONS (8)
  - SOMNOLENCE [None]
  - SINUSITIS [None]
  - PAIN IN EXTREMITY [None]
  - PSORIASIS [None]
  - JOINT RANGE OF MOTION DECREASED [None]
  - BLOOD URINE PRESENT [None]
  - WEIGHT INCREASED [None]
  - FATIGUE [None]
